FAERS Safety Report 16296270 (Version 1)
Quarter: 2019Q2

REPORT INFORMATION
  Report Type: Spontaneous
  Country: US (occurrence: US)
  Receive Date: 20190510
  Receipt Date: 20190510
  Transmission Date: 20190711
  Serious: No
  Sender: FDA-Public Use
  Company Number: US-PFIZER INC-2019192924

PATIENT
  Age: 56 Year
  Sex: Male
  Weight: 90.72 kg

DRUGS (3)
  1. LYRICA [Suspect]
     Active Substance: PREGABALIN
     Indication: NEUROPATHY PERIPHERAL
     Dosage: 150 MG, 2X/DAY
     Route: 048
  2. NORTHERA [Concomitant]
     Active Substance: DROXIDOPA
     Indication: BLOOD PRESSURE DECREASED
     Dosage: 100 MG, 3X/DAY (100MG 1 CAPSULE 3 TIMES A DAILY FOR CERTAIN AMOUNT OF DAYS)
     Dates: start: 201807
  3. NORTHERA [Concomitant]
     Active Substance: DROXIDOPA
     Dosage: UNK, AS NEEDED

REACTIONS (1)
  - Amnesia [Not Recovered/Not Resolved]

NARRATIVE: CASE EVENT DATE: 201706
